FAERS Safety Report 13738898 (Version 1)
Quarter: 2017Q3

REPORT INFORMATION
  Report Type: Report from Study
  Country: US (occurrence: US)
  Receive Date: 20170710
  Receipt Date: 20170710
  Transmission Date: 20171127
  Serious: No
  Sender: FDA-Public Use
  Company Number: US-SAOL THERAPEUTICS-2017SAO00664

PATIENT
  Sex: Male

DRUGS (9)
  1. COMPOUNDED BACLOFEN [Suspect]
     Active Substance: BACLOFEN
     Dosage: 79.89 ?G, \DAY
     Route: 037
     Dates: start: 20151105
  2. DILAUDID [Suspect]
     Active Substance: HYDROMORPHONE HYDROCHLORIDE
     Dosage: 1.388 MG, \DAY
     Route: 037
     Dates: start: 20151007, end: 20151105
  3. BUPIVACAINE. [Suspect]
     Active Substance: BUPIVACAINE
     Dosage: 6.944 MG, \DAY
     Route: 037
     Dates: start: 20151007, end: 20151105
  4. COMPOUNDED BACLOFEN [Suspect]
     Active Substance: BACLOFEN
     Dosage: 69.44 ?G, \DAY
     Route: 037
     Dates: start: 20151007, end: 20151105
  5. COMPOUNDED BACLOFEN [Suspect]
     Active Substance: BACLOFEN
     Dosage: 39.97 ?G, \DAY
     Route: 037
     Dates: start: 20151007, end: 20151105
  6. BUPIVACAINE. [Suspect]
     Active Substance: BUPIVACAINE
     Dosage: 5.326 MG, \DAY
     Route: 037
     Dates: start: 20151105
  7. DILAUDID [Suspect]
     Active Substance: HYDROMORPHONE HYDROCHLORIDE
     Dosage: 0.799 MG, \DAY
     Route: 037
     Dates: start: 20151007, end: 20151105
  8. BUPIVACAINE. [Suspect]
     Active Substance: BUPIVACAINE
     Dosage: 3.997 MG, \DAY
     Route: 037
     Dates: start: 20151007, end: 20151105
  9. DILAUDID [Suspect]
     Active Substance: HYDROMORPHONE HYDROCHLORIDE
     Dosage: 0.798 MG, \DAY
     Route: 037
     Dates: start: 20151105

REACTIONS (1)
  - Hypoaesthesia [Recovering/Resolving]

NARRATIVE: CASE EVENT DATE: 20151105
